FAERS Safety Report 10638074 (Version 1)
Quarter: 2014Q4

REPORT INFORMATION
  Report Type: Spontaneous
  Country: US (occurrence: US)
  Receive Date: 20141208
  Receipt Date: 20141208
  Transmission Date: 20150529
  Serious: No
  Sender: FDA-Public Use
  Company Number: US-009507513-1411USA008362

PATIENT
  Sex: Female

DRUGS (6)
  1. ULTRACET [Concomitant]
     Active Substance: ACETAMINOPHEN\TRAMADOL HYDROCHLORIDE
  2. GLUCOPHAGE [Concomitant]
     Active Substance: METFORMIN HYDROCHLORIDE
  3. TENORMIN [Concomitant]
     Active Substance: ATENOLOL
  4. COZAAR [Suspect]
     Active Substance: LOSARTAN POTASSIUM
     Dosage: 50 MG DAILY
     Route: 048
     Dates: start: 2004
  5. NORVASC [Concomitant]
     Active Substance: AMLODIPINE BESYLATE
  6. COZAAR [Suspect]
     Active Substance: LOSARTAN POTASSIUM
     Dosage: 50 MG DAILY
     Route: 048
     Dates: end: 20141006

REACTIONS (8)
  - Productive cough [Unknown]
  - Cough [Unknown]
  - Choking [Unknown]
  - Throat irritation [Unknown]
  - Abdominal distension [Recovering/Resolving]
  - Dysphagia [Unknown]
  - Epigastric discomfort [Recovering/Resolving]
  - Dysphonia [Unknown]

NARRATIVE: CASE EVENT DATE: 2010
